FAERS Safety Report 19728996 (Version 1)
Quarter: 2021Q3

REPORT INFORMATION
  Report Type: Report from Study
  Country: IT (occurrence: IT)
  Receive Date: 20210820
  Receipt Date: 20210820
  Transmission Date: 20211014
  Serious: Yes (Other)
  Sender: FDA-Public Use
  Company Number: IT-TEVA-2021-IT-1942609

PATIENT
  Age: 28 Year
  Sex: Female

DRUGS (2)
  1. KETOPROFEN. [Suspect]
     Active Substance: KETOPROFEN
     Route: 065
     Dates: start: 20210801, end: 20210801
  2. AUGMENTIN [Suspect]
     Active Substance: AMOXICILLIN\CLAVULANATE POTASSIUM
     Dosage: 2 G
     Route: 048
     Dates: start: 20210731, end: 20210801

REACTIONS (2)
  - Lip swelling [Recovering/Resolving]
  - Dysentery [Recovering/Resolving]

NARRATIVE: CASE EVENT DATE: 20210801
